FAERS Safety Report 14572637 (Version 2)
Quarter: 2018Q1

REPORT INFORMATION
  Report Type: Spontaneous
  Country: US (occurrence: US)
  Receive Date: 20180226
  Receipt Date: 20180320
  Transmission Date: 20180509
  Serious: Yes (Other)
  Sender: FDA-Public Use
  Company Number: US-ASTELLAS-2017US041374

PATIENT
  Age: 79 Year
  Sex: Male

DRUGS (5)
  1. XTANDI [Suspect]
     Active Substance: ENZALUTAMIDE
     Route: 048
     Dates: start: 201710
  2. XTANDI [Suspect]
     Active Substance: ENZALUTAMIDE
     Dosage: UNK, UNKNOWN FREQ.
     Route: 048
  3. XTANDI [Suspect]
     Active Substance: ENZALUTAMIDE
     Route: 048
  4. XTANDI [Suspect]
     Active Substance: ENZALUTAMIDE
     Route: 048
     Dates: start: 201707
  5. XTANDI [Suspect]
     Active Substance: ENZALUTAMIDE
     Indication: PROSTATE CANCER
     Route: 048
     Dates: start: 20170717

REACTIONS (7)
  - Drug dose omission [Unknown]
  - Feeling abnormal [Unknown]
  - Dyspepsia [Recovering/Resolving]
  - Abdominal pain upper [Unknown]
  - Hypoacusis [Not Recovered/Not Resolved]
  - Prostatic specific antigen increased [Unknown]
  - Deafness [Unknown]

NARRATIVE: CASE EVENT DATE: 201709
